FAERS Safety Report 15992200 (Version 1)
Quarter: 2019Q1

REPORT INFORMATION
  Report Type: Spontaneous
  Country: US (occurrence: US)
  Receive Date: 20190221
  Receipt Date: 20190221
  Transmission Date: 20190418
  Serious: Yes (Hospitalization)
  Sender: FDA-Public Use
  Company Number: US-VERTEX PHARMACEUTICALS-2019-001465

PATIENT
  Age: 34 Year
  Sex: Male

DRUGS (22)
  1. PULMOZYME [Suspect]
     Active Substance: DORNASE ALFA
     Indication: CYSTIC FIBROSIS
     Dosage: 2.5 MG/ML, BID
     Route: 055
     Dates: start: 20160210
  2. AMLODIPINE [Concomitant]
     Active Substance: AMLODIPINE BESYLATE
  3. SERTRALINE [Concomitant]
     Active Substance: SERTRALINE HYDROCHLORIDE
  4. PROMETHAZINE [Concomitant]
     Active Substance: PROMETHAZINE\PROMETHAZINE HYDROCHLORIDE
  5. MUPIROCIN. [Concomitant]
     Active Substance: MUPIROCIN
  6. VITAMIN D2 [Concomitant]
     Active Substance: ERGOCALCIFEROL
  7. HYDROCODONE BITARTRATE AND ACETAMINOPHEN [Concomitant]
     Active Substance: ACETAMINOPHEN\HYDROCODONE BITARTRATE
  8. LEVOFLOXACIN                       /01278903/ [Concomitant]
     Active Substance: LEVOFLOXACIN
  9. TOBRAMICINA DEXAMETASONA MAX VISION [Concomitant]
  10. HYDROXYZINE HYDROCHLORIDE. [Concomitant]
     Active Substance: HYDROXYZINE HYDROCHLORIDE
  11. LINEZOLID. [Concomitant]
     Active Substance: LINEZOLID
  12. BUDESONIDE. [Concomitant]
     Active Substance: BUDESONIDE
  13. CIPROFLOXACIN. [Concomitant]
     Active Substance: CIPROFLOXACIN
  14. PROAIR HFA [Concomitant]
     Active Substance: ALBUTEROL SULFATE
  15. SODIUM CHLORIDE. [Concomitant]
     Active Substance: SODIUM CHLORIDE
  16. TOBI [Concomitant]
     Active Substance: TOBRAMYCIN
  17. SMZ-TMP [Concomitant]
     Active Substance: SULFAMETHOXAZOLE\TRIMETHOPRIM
  18. ORKAMBI [Suspect]
     Active Substance: IVACAFTOR\LUMACAFTOR
     Indication: CYSTIC FIBROSIS
     Dosage: 400/250 MG, BID
     Route: 048
     Dates: start: 20180313
  19. ZOLPIDEM [Concomitant]
     Active Substance: ZOLPIDEM\ZOLPIDEM TARTRATE
  20. DOXYCYCLIN                         /00055701/ [Concomitant]
     Active Substance: DOXYCYCLINE
  21. ALENDRONATE [Concomitant]
     Active Substance: ALENDRONATE SODIUM
  22. LEVOCETIRIZINE [Concomitant]
     Active Substance: LEVOCETIRIZINE

REACTIONS (1)
  - Pneumonia [Unknown]

NARRATIVE: CASE EVENT DATE: 20190201
